FAERS Safety Report 16160620 (Version 2)
Quarter: 2020Q4

REPORT INFORMATION
  Report Type: Spontaneous
  Country: US (occurrence: US)
  Receive Date: 20190405
  Receipt Date: 20201015
  Transmission Date: 20210113
  Serious: Yes (Hospitalization)
  Sender: FDA-Public Use
  Company Number: US-JNJFOC-20190334318

PATIENT
  Age: 64 Year
  Sex: Male

DRUGS (2)
  1. ASPRIN [Suspect]
     Active Substance: ASPIRIN
     Indication: PRODUCT USED FOR UNKNOWN INDICATION
     Route: 048
     Dates: end: 201705
  2. XARELTO [Suspect]
     Active Substance: RIVAROXABAN
     Indication: DEEP VEIN THROMBOSIS
     Route: 048
     Dates: start: 20170413, end: 20170515

REACTIONS (2)
  - Acute kidney injury [Recovering/Resolving]
  - Gastrointestinal vascular malformation haemorrhagic [Recovering/Resolving]

NARRATIVE: CASE EVENT DATE: 20170514
